FAERS Safety Report 10705347 (Version 3)
Quarter: 2015Q1

REPORT INFORMATION
  Report Type: Spontaneous
  Country: US (occurrence: US)
  Receive Date: 20150112
  Receipt Date: 20150116
  Transmission Date: 20150721
  Serious: Yes (Other)
  Sender: FDA-Public Use
  Company Number: US-MALLINCKRODT-T201404402

PATIENT
  Age: 58 Year
  Sex: Male

DRUGS (1)
  1. GABLOFEN [Suspect]
     Active Substance: BACLOFEN
     Indication: MUSCLE SPASTICITY
     Dosage: 631 MCG/DAY
     Route: 037

REACTIONS (4)
  - Muscle spasticity [Recovered/Resolved]
  - Device breakage [Recovered/Resolved]
  - Pruritus [Recovered/Resolved]
  - Implant site haematoma [Recovered/Resolved]

NARRATIVE: CASE EVENT DATE: 201412
